FAERS Safety Report 8536069-2 (Version None)
Quarter: 2012Q3

REPORT INFORMATION
  Report Type: 
  Country: None (occurrence: None)
  Receive Date: 20120725
  Receipt Date: 20120719
  Transmission Date: 20120928
  Serious: Yes (Disabling)
  Sender: FDA-Public Use
  Company Number: NO-PFIZER INC-2012134613

PATIENT
  Age: 56 Year
  Sex: Male

DRUGS (3)
  1. COZAAR [Concomitant]
     Dosage: 50 MG, UNK
  2. LIPITOR [Suspect]
     Dosage: 40 MG, UNK
     Dates: start: 20110101
  3. LIPITOR [Suspect]
     Dosage: 20 MG, UNK
     Dates: start: 20110101

REACTIONS (4)
  - RHABDOMYOLYSIS [None]
  - POLYMYALGIA RHEUMATICA [None]
  - RENAL FAILURE [None]
  - DIABETES MELLITUS [None]
